FAERS Safety Report 8120847-8 (Version None)
Quarter: 2012Q1

REPORT INFORMATION
  Report Type: 
  Country: None (occurrence: None)
  Receive Date: 20120208
  Receipt Date: 20120126
  Transmission Date: 20120608
  Serious: Yes (Other)
  Sender: FDA-Public Use
  Company Number: NL-AMGEN-NLDSP2012007317

PATIENT
  Age: 26 Year
  Sex: Female
  Weight: 77 kg

DRUGS (3)
  1. PREDNISONE [Concomitant]
     Dosage: 7.5 MG, 1X/DAY
     Dates: start: 20110323
  2. ENBREL [Suspect]
     Indication: RHEUMATOID ARTHRITIS
     Dosage: 50 MG, WEEKLY
     Dates: start: 20110417
  3. PREDNISONE [Concomitant]
     Indication: RHEUMATOID ARTHRITIS
     Dosage: UNK
     Dates: start: 20090701

REACTIONS (1)
  - POSTPARTUM HAEMORRHAGE [None]
